FAERS Safety Report 8331655-7 (Version None)
Quarter: 2012Q2

REPORT INFORMATION
  Report Type: 
  Country: None (occurrence: None)
  Receive Date: 20120502
  Receipt Date: 20110412
  Transmission Date: 20120825
  Serious: No
  Sender: FDA-Public Use
  Company Number: US-ASTRAZENECA-2011SE20939

PATIENT
  Age: 18 Month
  Sex: Female

DRUGS (1)
  1. ENTOCORT EC [Suspect]
     Indication: GRAFT VERSUS HOST DISEASE
     Route: 048

REACTIONS (2)
  - DRUG INTOLERANCE [None]
  - OFF LABEL USE [None]
